FAERS Safety Report 9451213 (Version 1)
Quarter: 2013Q3

REPORT INFORMATION
  Report Type: Spontaneous
  Country: JP (occurrence: JP)
  Receive Date: 20130809
  Receipt Date: 20130809
  Transmission Date: 20140515
  Serious: Yes (Death, Hospitalization)
  Sender: FDA-Public Use
  Company Number: JP-TEVA-423379ISR

PATIENT
  Age: 66 Year
  Sex: Female

DRUGS (1)
  1. CEFTRIAXONE [Suspect]
     Indication: NEUROSYPHILIS
     Route: 065

REACTIONS (3)
  - Acquired haemophilia with anti FVIII, XI, or XIII [Fatal]
  - Shock haemorrhagic [Fatal]
  - Intra-abdominal haemorrhage [Fatal]
